FAERS Safety Report 9697330 (Version 1)
Quarter: 2013Q4

REPORT INFORMATION
  Report Type: Spontaneous
  Country: FR (occurrence: FR)
  Receive Date: 20131120
  Receipt Date: 20131120
  Transmission Date: 20140711
  Serious: Yes (Hospitalization)
  Sender: FDA-Public Use
  Company Number: FR-JNJFOC-20131106766

PATIENT
  Age: 60 Year
  Sex: Male

DRUGS (1)
  1. DUROGESIC [Suspect]
     Indication: PRODUCT USED FOR UNKNOWN INDICATION
     Route: 062
     Dates: start: 201308, end: 201308

REACTIONS (3)
  - Pneumonia aspiration [Recovered/Resolved]
  - Disturbance in attention [Recovered/Resolved]
  - Medication error [Unknown]
